FAERS Safety Report 24139332 (Version 2)
Quarter: 2024Q3

REPORT INFORMATION
  Report Type: Report from Study
  Country: CA (occurrence: CA)
  Receive Date: 20240726
  Receipt Date: 20240801
  Transmission Date: 20241017
  Serious: No
  Sender: NOVARTIS
  Company Number: CA-002147023-NVSC2024CA151681

PATIENT
  Age: 38 Year
  Sex: Female

DRUGS (1)
  1. KESIMPTA [Suspect]
     Active Substance: OFATUMUMAB
     Indication: Relapsing-remitting multiple sclerosis
     Dosage: 20 MG, QMO
     Route: 058
     Dates: start: 20240719

REACTIONS (1)
  - Muscular weakness [Recovered/Resolved]

NARRATIVE: CASE EVENT DATE: 20240719
